FAERS Safety Report 15906697 (Version 1)
Quarter: 2019Q1

REPORT INFORMATION
  Report Type: Spontaneous
  Country: US (occurrence: US)
  Receive Date: 20190204
  Receipt Date: 20190204
  Transmission Date: 20190417
  Serious: Yes (Death)
  Sender: FDA-Public Use
  Company Number: None

PATIENT
  Sex: Male

DRUGS (9)
  1. BICALUTAMIDE. [Concomitant]
     Active Substance: BICALUTAMIDE
  2. HYDROCHLOROT [Concomitant]
     Active Substance: HYDROCHLOROTHIAZIDE
  3. ATENOLOL. [Concomitant]
     Active Substance: ATENOLOL
  4. COUMADIN [Concomitant]
     Active Substance: WARFARIN SODIUM
  5. LUPRON DEPOT [Suspect]
     Active Substance: LEUPROLIDE ACETATE
     Indication: PROSTATE CANCER
     Dosage: ?          OTHER FREQUENCY:Q6M;?
     Route: 030
     Dates: start: 20180711
  6. COENZYME Q10 [Concomitant]
     Active Substance: UBIDECARENONE
  7. FISH OIL [Concomitant]
     Active Substance: FISH OIL
  8. LISINOPRIL. [Concomitant]
     Active Substance: LISINOPRIL
  9. TUMERIC [Concomitant]
     Active Substance: HERBALS\TURMERIC

REACTIONS (1)
  - Death [None]
